FAERS Safety Report 16393459 (Version 1)
Quarter: 2019Q2

REPORT INFORMATION
  Report Type: Spontaneous
  Country: FR (occurrence: FR)
  Receive Date: 20190605
  Receipt Date: 20190605
  Transmission Date: 20190711
  Serious: Yes (Other)
  Sender: FDA-Public Use
  Company Number: FR-GLAXOSMITHKLINE-FR2019100598

PATIENT
  Age: 63 Year
  Sex: Female

DRUGS (7)
  1. ORACILLINE [Suspect]
     Active Substance: PENICILLIN V
     Indication: PREMEDICATION
     Dosage: UNK
     Route: 048
     Dates: start: 20190314
  2. REVLIMID [Suspect]
     Active Substance: LENALIDOMIDE
     Indication: PLASMA CELL MYELOMA
     Dosage: UNK
     Route: 048
     Dates: start: 20190430
  3. KYPROLIS [Suspect]
     Active Substance: CARFILZOMIB
     Indication: PLASMA CELL MYELOMA
     Dosage: J1/J2/J8/J9/J15/J16
     Route: 042
     Dates: start: 20190429
  4. FOLINORAL [Suspect]
     Active Substance: LEUCOVORIN CALCIUM
     Indication: PREMEDICATION
     Dosage: UNK
     Route: 048
     Dates: start: 20190314
  5. ZELITREX [Suspect]
     Active Substance: VALACYCLOVIR HYDROCHLORIDE
     Indication: PREMEDICATION
     Dosage: UNK
     Route: 048
     Dates: start: 20190314
  6. BACTRIM [Suspect]
     Active Substance: SULFAMETHOXAZOLE\TRIMETHOPRIM
     Indication: PREMEDICATION
     Dosage: UNK
     Route: 048
     Dates: start: 20190314
  7. DEXAMETHASONE. [Concomitant]
     Active Substance: DEXAMETHASONE
     Indication: PRODUCT USED FOR UNKNOWN INDICATION
     Dosage: 40 MG, WE
     Route: 048

REACTIONS (2)
  - Toxic skin eruption [Not Recovered/Not Resolved]
  - Eczema [Not Recovered/Not Resolved]

NARRATIVE: CASE EVENT DATE: 20190509
